FAERS Safety Report 4605804-8 (Version None)
Quarter: 2005Q1

REPORT INFORMATION
  Report Type: 
  Country: None (occurrence: None)
  Receive Date: 20050115
  Receipt Date: 20040226
  Transmission Date: 20050727
  Serious: Yes (Hospitalization)
  Sender: FDA-Public Use
  Company Number: A03200400600

PATIENT
  Age: 48 Year
  Sex: Male
  Weight: 79.3795 kg

DRUGS (4)
  1. AMBIEN [Suspect]
     Indication: INSOMNIA
     Dosage: 5 MS HS - ORAL
     Route: 048
     Dates: start: 20031014, end: 20031019
  2. AMBIEN [Suspect]
     Indication: INSOMNIA
     Dosage: 10 MG HS - ORAL
     Route: 048
     Dates: start: 20031020, end: 20031022
  3. WELLBUTRIN [Suspect]
     Indication: DEPRESSION
     Dosage: 150 MG QD - ORAL
     Route: 048
     Dates: start: 20031020, end: 20031001
  4. PAROXETINE HYDROCHLORIDE [Concomitant]

REACTIONS (10)
  - ABNORMAL BEHAVIOUR [None]
  - CHEST PAIN [None]
  - CONFUSIONAL STATE [None]
  - DEPRESSION [None]
  - DRY MOUTH [None]
  - HEADACHE [None]
  - HEART RATE INCREASED [None]
  - LIBIDO DECREASED [None]
  - MOOD SWINGS [None]
  - SUICIDE ATTEMPT [None]
